FAERS Safety Report 8329608-8 (Version None)
Quarter: 2012Q2

REPORT INFORMATION
  Report Type: 
  Country: None (occurrence: None)
  Receive Date: 20120502
  Receipt Date: 20090924
  Transmission Date: 20120825
  Serious: No
  Sender: FDA-Public Use
  Company Number: US-TEVA-2009010650

PATIENT
  Sex: Male
  Weight: 127.12 kg

DRUGS (1)
  1. NUVIGIL [Suspect]
     Indication: SOMNOLENCE
     Dosage: 150 MILLIGRAM;
     Route: 048
     Dates: start: 20090915

REACTIONS (2)
  - DIZZINESS POSTURAL [None]
  - DRUG INEFFECTIVE [None]
